FAERS Safety Report 10861442 (Version 2)
Quarter: 2015Q1

REPORT INFORMATION
  Report Type: Spontaneous
  Country: US (occurrence: US)
  Receive Date: 20150224
  Receipt Date: 20150305
  Transmission Date: 20150721
  Serious: Yes (Hospitalization, Other)
  Sender: FDA-Public Use
  Company Number: US-UNITED THERAPEUTICS-UNT-2014-012136

PATIENT
  Age: 58 Year
  Sex: Female
  Weight: 72.56 kg

DRUGS (5)
  1. TYVASO [Suspect]
     Active Substance: TREPROSTINIL
     Dosage: 18-54 ?G, QID
     Dates: start: 20141030
  2. OPSUMIT [Concomitant]
     Active Substance: MACITENTAN
     Indication: PRODUCT USED FOR UNKNOWN INDICATION
  3. TYVASO [Suspect]
     Active Substance: TREPROSTINIL
     Dosage: 18-54 ?G, QID
     Dates: start: 20141030
  4. TYVASO [Suspect]
     Active Substance: TREPROSTINIL
     Dosage: 18-54 ?G, QID
     Dates: start: 20141030
  5. TYVASO [Suspect]
     Active Substance: TREPROSTINIL
     Indication: PULMONARY HYPERTENSION
     Dosage: 18-54 ?G, QID
     Dates: start: 20141029

REACTIONS (10)
  - Depressed mood [Unknown]
  - Palpitations [Unknown]
  - Chest pain [Unknown]
  - Chest discomfort [Recovered/Resolved]
  - Pyrexia [Recovered/Resolved]
  - Nausea [Unknown]
  - Eructation [Unknown]
  - Oesophageal spasm [Unknown]
  - Dyspnoea [Unknown]
  - Productive cough [Unknown]

NARRATIVE: CASE EVENT DATE: 2014
